FAERS Safety Report 7396258-X (Version None)
Quarter: 2011Q2

REPORT INFORMATION
  Report Type: 
  Country: None (occurrence: None)
  Receive Date: 20110406
  Receipt Date: 20110324
  Transmission Date: 20111010
  Serious: Yes (Death, Other)
  Sender: FDA-Public Use
  Company Number: FR-CELGENEUS-056-50794-10061333

PATIENT
  Sex: Male
  Weight: 81 kg

DRUGS (10)
  1. LASIX [Concomitant]
     Indication: HYPERTENSION
     Route: 065
  2. VIDAZA [Suspect]
     Dosage: 75 MILLIGRAM/SQ. METER
     Route: 050
     Dates: start: 20100520, end: 20100523
  3. VIDAZA [Suspect]
     Dosage: 75 MILLIGRAM/SQ. METER
     Route: 058
     Dates: start: 20100413
  4. VERCYTE [Concomitant]
     Dosage: 2 CAPSULE
     Route: 065
     Dates: start: 19990203, end: 20100325
  5. HYDREA [Concomitant]
     Route: 065
     Dates: start: 20100521, end: 20100524
  6. REVLIMID [Suspect]
     Dosage: 5 MILLIGRAM
     Route: 048
     Dates: start: 20100413
  7. PURINETHOL [Concomitant]
     Route: 065
     Dates: start: 20100521, end: 20100524
  8. REVLIMID [Suspect]
     Dosage: 5 MILLIGRAM
     Route: 048
     Dates: start: 20100520, end: 20100522
  9. LODOZ [Concomitant]
     Indication: HYPERTENSION
     Route: 065
  10. XALATAN [Concomitant]
     Indication: GLAUCOMA
     Route: 065

REACTIONS (2)
  - CEREBRAL HAEMORRHAGE [None]
  - NEUROPATHY PERIPHERAL [None]
